FAERS Safety Report 7119523-X (Version None)
Quarter: 2010Q4

REPORT INFORMATION
  Report Type: 
  Country: None (occurrence: None)
  Receive Date: 20101123
  Receipt Date: 20101029
  Transmission Date: 20110411
  Serious: Yes (Other)
  Sender: FDA-Public Use
  Company Number: GB-AMGEN-KDL425249

PATIENT

DRUGS (8)
  1. NEUPOGEN [Suspect]
     Indication: ANAEMIA
     Dosage: UNK UNK, UNK
     Route: 058
     Dates: start: 20100707
  2. PROCRIT [Suspect]
     Indication: ANAEMIA
     Dosage: UNK UNK, QWK
     Route: 058
     Dates: start: 20100418
  3. INTERFERON [Concomitant]
     Dosage: 180 A?G, QWK
     Route: 058
  4. INTERFERON [Concomitant]
     Dosage: 135 A?G, UNK
  5. RIBAVIRIN [Concomitant]
     Dosage: 1200 MG, BID
     Route: 048
  6. RIBAVIRIN [Concomitant]
     Dosage: 1000 MG, UNK
  7. RIBAVIRIN [Concomitant]
     Dosage: 800 MG, QD
  8. ARANESP [Suspect]

REACTIONS (12)
  - ANAEMIA [None]
  - BACK PAIN [None]
  - COUGH [None]
  - DIZZINESS [None]
  - FATIGUE [None]
  - NAUSEA [None]
  - PAIN [None]
  - PANCYTOPENIA [None]
  - PLATELET COUNT DECREASED [None]
  - RASH [None]
  - WEIGHT DECREASED [None]
  - WHITE BLOOD CELL COUNT DECREASED [None]
